FAERS Safety Report 17950764 (Version 1)
Quarter: 2020Q2

REPORT INFORMATION
  Report Type: Spontaneous
  Country: FR (occurrence: FR)
  Receive Date: 20200626
  Receipt Date: 20200626
  Transmission Date: 20200714
  Serious: Yes (Hospitalization)
  Sender: FDA-Public Use
  Company Number: NVSC2020FR178779

PATIENT
  Age: 34 Year
  Sex: Male
  Weight: 96 kg

DRUGS (9)
  1. LYRICA [Suspect]
     Active Substance: PREGABALIN
     Indication: DIABETIC NEUROPATHY
     Dosage: 3 DF, QD
     Route: 048
     Dates: start: 20170718
  2. PARACETAMOL [Suspect]
     Active Substance: ACETAMINOPHEN
     Indication: DIABETIC NEUROPATHY
     Dosage: 4 G, QD
     Route: 048
     Dates: start: 20170711
  3. NICOTINAMIDE [Suspect]
     Active Substance: NIACINAMIDE
     Indication: DEPRESSION
     Dosage: 1 DF, QD
     Route: 048
     Dates: start: 20170719
  4. ZOLPIDEM [Concomitant]
     Active Substance: ZOLPIDEM TARTRATE
     Indication: PRODUCT USED FOR UNKNOWN INDICATION
     Route: 065
  5. ALPRAZOLAM. [Concomitant]
     Active Substance: ALPRAZOLAM
     Indication: PRODUCT USED FOR UNKNOWN INDICATION
     Route: 065
  6. HUMALOG [Concomitant]
     Active Substance: INSULIN LISPRO
     Indication: PRODUCT USED FOR UNKNOWN INDICATION
     Route: 065
  7. TRAMADOL. [Suspect]
     Active Substance: TRAMADOL
     Indication: DIABETIC NEUROPATHY
     Dosage: 200 MG, QD
     Route: 065
     Dates: start: 20170719
  8. JANUVIA [Suspect]
     Active Substance: SITAGLIPTIN PHOSPHATE
     Indication: TYPE 2 DIABETES MELLITUS
     Dosage: 1 DF, QD
     Route: 048
     Dates: start: 20170717
  9. LANTUS [Concomitant]
     Active Substance: INSULIN GLARGINE
     Indication: PRODUCT USED FOR UNKNOWN INDICATION
     Route: 065

REACTIONS (1)
  - Oedematous pancreatitis [Recovered/Resolved]

NARRATIVE: CASE EVENT DATE: 201710
